FAERS Safety Report 6380176-X (Version None)
Quarter: 2009Q3

REPORT INFORMATION
  Report Type: 
  Country: None (occurrence: None)
  Receive Date: 20090929
  Receipt Date: 20090921
  Transmission Date: 20100115
  Serious: Yes (Hospitalization)
  Sender: FDA-Public Use
  Company Number: US-ELI_LILLY_AND_COMPANY-US200909005114

PATIENT
  Age: 46 Year
  Sex: Male

DRUGS (1)
  1. HUMULIN R [Suspect]

REACTIONS (3)
  - NAUSEA [None]
  - VOMITING [None]
  - WEIGHT INCREASED [None]
